FAERS Safety Report 12596841 (Version 5)
Quarter: 2024Q4

REPORT INFORMATION
  Report Type: Report from Study
  Country: JP (occurrence: JP)
  Receive Date: 20160727
  Receipt Date: 20241227
  Transmission Date: 20250115
  Serious: Yes (Hospitalization)
  Sender: ROCHE
  Company Number: JP-CHUGAI-A2016002264ROCHE

PATIENT
  Age: 70 Year
  Sex: Female
  Weight: 60.0 kg

DRUGS (3)
  1. VEMURAFENIB [Suspect]
     Active Substance: VEMURAFENIB
     Indication: Malignant melanoma
     Route: 048
     Dates: start: 20160106, end: 20160114
  2. VEMURAFENIB [Suspect]
     Active Substance: VEMURAFENIB
     Route: 048
     Dates: start: 20160126, end: 20160816
  3. VEMURAFENIB [Suspect]
     Active Substance: VEMURAFENIB
     Route: 048

REACTIONS (9)
  - Erythema nodosum [Recovered/Resolved]
  - Urticaria [Not Recovered/Not Resolved]
  - Pyrexia [Recovering/Resolving]
  - Drug eruption [Recovered/Resolved]
  - Hyperkeratosis [Not Recovered/Not Resolved]
  - Diarrhoea [Not Recovered/Not Resolved]
  - Skin papilloma [Not Recovered/Not Resolved]
  - Taste disorder [Recovered/Resolved]
  - Dysgeusia [Unknown]

NARRATIVE: CASE EVENT DATE: 20160110
